FAERS Safety Report 9645128 (Version 1)
Quarter: 2013Q4

REPORT INFORMATION
  Report Type: Spontaneous
  Country: US (occurrence: US)
  Receive Date: 20131025
  Receipt Date: 20131025
  Transmission Date: 20140711
  Serious: No
  Sender: FDA-Public Use
  Company Number: US-009507513-1310USA008342

PATIENT
  Sex: Female

DRUGS (1)
  1. SAPHRIS [Suspect]
     Dosage: THE PATIENT WAS CUTTING THE 5MG TABLET IN HALF AND TAKING A HALF A PILL EACH DAY
     Route: 060

REACTIONS (4)
  - Breast pain [Recovered/Resolved]
  - Inappropriate schedule of drug administration [Unknown]
  - Underdose [Unknown]
  - Wrong technique in drug usage process [Unknown]
